FAERS Safety Report 22616748 (Version 1)
Quarter: 2023Q2

REPORT INFORMATION
  Report Type: Report from Study
  Country: US (occurrence: US)
  Receive Date: 20230619
  Receipt Date: 20230619
  Transmission Date: 20230721
  Serious: Yes (Death)
  Sender: FDA-Public Use
  Company Number: US-BAUSCH-BL-2023-000681

PATIENT
  Age: 65 Year
  Sex: Male

DRUGS (18)
  1. XIFAXAN [Suspect]
     Active Substance: RIFAXIMIN
     Indication: Product used for unknown indication
     Route: 065
  2. VITAMIN D3 [Concomitant]
     Active Substance: CHOLECALCIFEROL
     Indication: Product used for unknown indication
     Dosage: 1000 UNITS TABLET, TAKE 5000 UNITS DAILY
     Route: 048
  3. INSPRA [Concomitant]
     Active Substance: EPLERENONE
     Indication: Product used for unknown indication
     Route: 048
     Dates: start: 20221109
  4. IRON [Concomitant]
     Active Substance: IRON
     Indication: Product used for unknown indication
     Dosage: 325 (65 FE) MG TABS
     Route: 048
  5. PERFOROMIST [Concomitant]
     Active Substance: FORMOTEROL FUMARATE DIHYDRATE
     Indication: Product used for unknown indication
     Dosage: 20 MCG/2 ML, NEBULIZER, USE 1 VIAL IN NEBULIZER TWICE DAILY MORNING AND EVENING
     Dates: start: 20220301, end: 20221229
  6. LASIX [Concomitant]
     Active Substance: FUROSEMIDE
     Indication: Product used for unknown indication
     Dosage: PATIENT TAKING DIFFERENTLY: TAKE 3 TABS ALTERNATING 2 TABS DAILY
     Dates: start: 20220818
  7. MUCINEX [Concomitant]
     Active Substance: GUAIFENESIN
     Indication: Product used for unknown indication
     Dosage: 12 HR TABLET
     Route: 048
     Dates: start: 20200903
  8. ATARAX [Concomitant]
     Active Substance: HYDROXYZINE HYDROCHLORIDE
     Indication: Anxiety
     Dosage: PRN
     Route: 048
     Dates: start: 20221109, end: 20221205
  9. CHRONULAC [Concomitant]
     Active Substance: LACTULOSE
     Indication: Product used for unknown indication
     Dosage: 10G/15 ML, TAKE 45 ML, (30 G TOTAL) BY MOUTH
     Route: 048
     Dates: start: 20221102
  10. DIETARY SUPPLEMENT\HERBALS\MILK THISTLE [Concomitant]
     Active Substance: MILK THISTLE
     Indication: Product used for unknown indication
     Route: 048
  11. MORPHINE SULFATE [Concomitant]
     Active Substance: MORPHINE SULFATE
     Indication: Product used for unknown indication
     Dates: start: 20221121, end: 20221221
  12. PRILOSEC [Concomitant]
     Active Substance: OMEPRAZOLE MAGNESIUM
     Indication: Product used for unknown indication
     Dosage: DELAYED RELEASE CAPSULE
     Dates: start: 20220610
  13. ZOFRAN [Concomitant]
     Active Substance: ONDANSETRON HYDROCHLORIDE
     Indication: Nausea
     Dosage: AS NEEDED
     Route: 048
     Dates: start: 20221109
  14. ZOFRAN [Concomitant]
     Active Substance: ONDANSETRON HYDROCHLORIDE
     Indication: Vomiting
  15. K DUR [Concomitant]
     Indication: Product used for unknown indication
     Dosage: AS NEEDED
     Dates: start: 20221101
  16. KLOR-CON [Concomitant]
     Active Substance: POTASSIUM CHLORIDE
     Indication: Product used for unknown indication
     Dosage: AS NEEDED
     Dates: start: 20221101
  17. PREDNISONE [Concomitant]
     Active Substance: PREDNISONE
     Indication: Product used for unknown indication
     Dosage: TAKE 4 TABS DAILY-4 DAYS, THEN 3 TABS DAILY-4 DAYS THEN GO BACK TO REGIMEN 20 MG GOAL TO TAPER 10 MG
     Route: 048
     Dates: start: 20221103, end: 20221208
  18. SPIRIVA RESPIMAT [Concomitant]
     Active Substance: TIOTROPIUM BROMIDE
     Indication: Product used for unknown indication
     Dosage: 2.5 MCG/ACT, AERS INHALER, INHALE 2 PUFFS DAILY
     Route: 055
     Dates: start: 20211110

REACTIONS (4)
  - Liver disorder [Fatal]
  - Chronic obstructive pulmonary disease [Unknown]
  - Abdominal distension [Unknown]
  - Product use issue [Unknown]
